FAERS Safety Report 24635859 (Version 1)
Quarter: 2024Q4

REPORT INFORMATION
  Report Type: Spontaneous
  Country: US (occurrence: None)
  Receive Date: 20241118
  Receipt Date: 20241118
  Transmission Date: 20250114
  Serious: Yes (Hospitalization)
  Sender: Public
  Company Number: None

PATIENT
  Sex: Female

DRUGS (3)
  1. PERTZYE [Suspect]
     Active Substance: PANCRELIPASE AMYLASE\PANCRELIPASE LIPASE\PANCRELIPASE PROTEASE
     Indication: Cystic fibrosis
     Route: 048
     Dates: start: 20151029
  2. JANUVIA [Concomitant]
  3. PULMOZYME [Concomitant]

REACTIONS (7)
  - Pancreatitis [None]
  - Cystic fibrosis [None]
  - Condition aggravated [None]
  - Fatigue [None]
  - Sleep disorder [None]
  - Loss of personal independence in daily activities [None]
  - Social problem [None]
